FAERS Safety Report 24667053 (Version 1)
Quarter: 2024Q4

REPORT INFORMATION
  Report Type: Spontaneous
  Country: CN (occurrence: CN)
  Receive Date: 20241126
  Receipt Date: 20241126
  Transmission Date: 20250115
  Serious: Yes (Hospitalization, Other)
  Sender: NOVARTIS
  Company Number: CN-002147023-NVSC2024CN225465

PATIENT
  Age: 49 Year
  Sex: Male
  Weight: 64 kg

DRUGS (1)
  1. TRAMETINIB [Suspect]
     Active Substance: TRAMETINIB
     Indication: Pancreatic carcinoma
     Dosage: 2 MG, QD
     Route: 048
     Dates: start: 20240901, end: 20241109

REACTIONS (7)
  - White blood cell count decreased [Recovering/Resolving]
  - Asthenia [Unknown]
  - Decreased appetite [Unknown]
  - Haemoglobin decreased [Unknown]
  - Nausea [Unknown]
  - Abdominal distension [Unknown]
  - C-reactive protein increased [Unknown]

NARRATIVE: CASE EVENT DATE: 20241106
